FAERS Safety Report 15594516 (Version 2)
Quarter: 2018Q4

REPORT INFORMATION
  Report Type: Spontaneous
  Country: HK (occurrence: HK)
  Receive Date: 20181107
  Receipt Date: 20181220
  Transmission Date: 20190205
  Serious: Yes (Hospitalization)
  Sender: FDA-Public Use
  Company Number: HK-ALLERGAN-1671442US

PATIENT
  Age: 30 Year
  Sex: Female

DRUGS (1)
  1. BOTULINUM TOXIN TYPE A UNK [Suspect]
     Active Substance: BOTULINUM TOXIN TYPE A
     Indication: OFF LABEL USE
     Dosage: 400 UNITS, SINGLE
     Route: 030

REACTIONS (7)
  - Botulism [Recovering/Resolving]
  - Muscular weakness [Recovering/Resolving]
  - Eyelid ptosis [Not Recovered/Not Resolved]
  - Dysphagia [Recovered/Resolved]
  - Off label use [Unknown]
  - Diplopia [Recovering/Resolving]
  - Dysarthria [Recovered/Resolved]
